FAERS Safety Report 5116860-5 (Version None)
Quarter: 2006Q3

REPORT INFORMATION
  Report Type: 
  Country: None (occurrence: None)
  Receive Date: 20060925
  Receipt Date: 20060911
  Transmission Date: 20061208
  Serious: Yes (Other)
  Sender: FDA-Public Use
  Company Number: 2006110432

PATIENT
  Sex: Female

DRUGS (1)
  1. GEODON [Suspect]
     Indication: BIPOLAR DISORDER
     Dosage: 40 MG (40 MG, 1 IN 1 D);

REACTIONS (13)
  - DELUSION [None]
  - DRUG INEFFECTIVE [None]
  - HALLUCINATION [None]
  - HEADACHE [None]
  - MALAISE [None]
  - MUSCLE STRAIN [None]
  - PHARYNGOLARYNGEAL PAIN [None]
  - PYREXIA [None]
  - SOMNOLENCE [None]
  - SUDDEN ONSET OF SLEEP [None]
  - SYNCOPE [None]
  - UNEVALUABLE EVENT [None]
  - VOMITING [None]
